FAERS Safety Report 16960707 (Version 3)
Quarter: 2019Q4

REPORT INFORMATION
  Report Type: Spontaneous
  Country: SE (occurrence: SE)
  Receive Date: 20191025
  Receipt Date: 20191128
  Transmission Date: 20200122
  Serious: No
  Sender: FDA-Public Use
  Company Number: SE-BEH-2019108591

PATIENT
  Age: 73 Year
  Sex: Male

DRUGS (21)
  1. PRIVIGEN [Suspect]
     Active Substance: HUMAN IMMUNOGLOBULIN G
     Dosage: 65 GRAM, QMT
     Route: 065
     Dates: start: 20120612
  2. KALCIPOS-D [Concomitant]
     Active Substance: CALCIUM CARBONATE\CHOLECALCIFEROL
  3. ENALAPRIL [Concomitant]
     Active Substance: ENALAPRIL
  4. PRIVIGEN [Suspect]
     Active Substance: HUMAN IMMUNOGLOBULIN G
     Dosage: 20 GRAM
     Route: 065
     Dates: start: 20191016, end: 20191016
  5. PRIVIGEN [Suspect]
     Active Substance: HUMAN IMMUNOGLOBULIN G
     Dosage: UNK UNK, TOT
     Route: 065
     Dates: start: 20191016, end: 20191016
  6. ESOMEPRAZOL [ESOMEPRAZOLE MAGNESIUM] [Concomitant]
  7. METOPROLOL. [Concomitant]
     Active Substance: METOPROLOL
  8. OXYCONTIN [Concomitant]
     Active Substance: OXYCODONE HYDROCHLORIDE
  9. IMOVANE [Concomitant]
     Active Substance: ZOPICLONE
  10. PRIVIGEN [Suspect]
     Active Substance: HUMAN IMMUNOGLOBULIN G
     Indication: CHRONIC INFLAMMATORY DEMYELINATING POLYRADICULONEUROPATHY
     Dosage: 40 GRAM
     Route: 065
     Dates: start: 20191016, end: 20191016
  11. SOLU-MEDROL [Concomitant]
     Active Substance: METHYLPREDNISOLONE SODIUM SUCCINATE
     Indication: PREMEDICATION
  12. IMDUR [Concomitant]
     Active Substance: ISOSORBIDE MONONITRATE
  13. SOLU-MEDROL [Concomitant]
     Active Substance: METHYLPREDNISOLONE SODIUM SUCCINATE
     Indication: PREMEDICATION
  14. ELIQUIS [Concomitant]
     Active Substance: APIXABAN
  15. AMLODIPIN [AMLODIPINE BESILATE] [Concomitant]
  16. ATORVASTATIN [Concomitant]
     Active Substance: ATORVASTATIN
  17. PREDNISOLON [PREDNISOLONE ACETATE] [Concomitant]
  18. ALVEDON [Concomitant]
     Active Substance: ACETAMINOPHEN
  19. PRIVIGEN [Suspect]
     Active Substance: HUMAN IMMUNOGLOBULIN G
     Dosage: 5 GRAM
     Route: 065
     Dates: start: 20191016, end: 20191016
  20. EZETROL [Concomitant]
     Active Substance: EZETIMIBE
  21. AZATHIOPRIN [Concomitant]
     Active Substance: AZATHIOPRINE

REACTIONS (10)
  - Abdominal pain [Unknown]
  - Chills [Unknown]
  - Feeling hot [Unknown]
  - Flushing [Unknown]
  - Pyrexia [Unknown]
  - Muscle spasms [Unknown]
  - Musculoskeletal pain [Unknown]
  - Nausea [Unknown]
  - Respiration abnormal [Unknown]
  - Erythema [Unknown]

NARRATIVE: CASE EVENT DATE: 20191016
